FAERS Safety Report 19688504 (Version 1)
Quarter: 2021Q3

REPORT INFORMATION
  Report Type: Spontaneous
  Country: US (occurrence: US)
  Receive Date: 20210811
  Receipt Date: 20210811
  Transmission Date: 20211014
  Serious: No
  Sender: FDA-Public Use
  Company Number: US-SA-2021SA252088

PATIENT
  Sex: Male

DRUGS (22)
  1. DUPIXENT [Suspect]
     Active Substance: DUPILUMAB
     Indication: ASTHMA
  2. CLONAZEPAM. [Concomitant]
     Active Substance: CLONAZEPAM
  3. RHINOCORT ALLERGY [Concomitant]
     Active Substance: BUDESONIDE
     Dosage: 50MG
  4. ALBUTEROL [SALBUTAMOL] [Concomitant]
     Active Substance: ALBUTEROL
  5. ALPHA LIPOIC ACID [Concomitant]
     Active Substance: .ALPHA.-LIPOIC ACID
  6. MAXALT [Concomitant]
     Active Substance: RIZATRIPTAN BENZOATE
  7. MAGNESIUM [Concomitant]
     Active Substance: MAGNESIUM
  8. ASPIRIN. [Concomitant]
     Active Substance: ASPIRIN
  9. FAMOTIDINE. [Concomitant]
     Active Substance: FAMOTIDINE
     Dosage: UNK MG
  10. DUPIXENT [Suspect]
     Active Substance: DUPILUMAB
     Indication: ASTHMA
     Dosage: 300 MG, QOW
     Route: 058
     Dates: start: 20210716, end: 2021
  11. DUPIXENT [Suspect]
     Active Substance: DUPILUMAB
     Indication: PIGMENTATION DISORDER
  12. CARAFATE [Concomitant]
     Active Substance: SUCRALFATE
  13. RIZATRIPTAN. [Concomitant]
     Active Substance: RIZATRIPTAN
  14. VOLTAREN ARTHRITIS PAIN [Concomitant]
     Active Substance: DICLOFENAC SODIUM
  15. TRAZODONE [Concomitant]
     Active Substance: TRAZODONE HYDROCHLORIDE
     Dosage: UNK
  16. FIORICET [Concomitant]
     Active Substance: ACETAMINOPHEN\BUTALBITAL\CAFFEINE
  17. WELLBUTRIN [Concomitant]
     Active Substance: BUPROPION HYDROCHLORIDE
  18. FISH OIL [Concomitant]
     Active Substance: FISH OIL
  19. VITAMIN B [Concomitant]
     Active Substance: VITAMIN B
     Dosage: 04MG
  20. CRANBERRY PROBIOTICS [Concomitant]
  21. LOVASTATIN. [Concomitant]
     Active Substance: LOVASTATIN
  22. MULTIVITAMINES WITH IRON [ASCORBIC ACID;CYANOCOBALAMIN;ERGOCALCIFEROL; [Concomitant]

REACTIONS (6)
  - Chest pain [Unknown]
  - Urinary tract infection [Unknown]
  - Back pain [Unknown]
  - Oral pruritus [Unknown]
  - Headache [Unknown]
  - Lip swelling [Unknown]

NARRATIVE: CASE EVENT DATE: 202107
